FAERS Safety Report 21086970 (Version 1)
Quarter: 2022Q3

REPORT INFORMATION
  Report Type: Spontaneous
  Country: DE (occurrence: DE)
  Receive Date: 20220715
  Receipt Date: 20220715
  Transmission Date: 20221027
  Serious: Yes (Other)
  Sender: FDA-Public Use
  Company Number: DE-ALKEM LABORATORIES LIMITED-DE-ALKEM-2022-07212

PATIENT
  Age: 55 Year
  Sex: Female

DRUGS (3)
  1. DEFERASIROX [Suspect]
     Active Substance: DEFERASIROX
     Indication: Iron overload
     Dosage: 12 MILLIGRAM/KILOGRAM (12 MG/KG DAILY)
     Route: 065
  2. DEFERASIROX [Suspect]
     Active Substance: DEFERASIROX
     Indication: Anaemia
     Dosage: 17 MILLIGRAM/KILOGRAM, DAILY
     Route: 065
  3. DEFERASIROX [Suspect]
     Active Substance: DEFERASIROX
     Dosage: 3 MILLIGRAM/KILOGRAM (3 MG/KG, INITIALLY DAILY, THEN EVERY OTHER DAY)
     Route: 065

REACTIONS (2)
  - Cholestasis [Recovered/Resolved]
  - Haemolysis [Recovered/Resolved]
